FAERS Safety Report 4920786-7 (Version None)
Quarter: 2006Q1

REPORT INFORMATION
  Report Type: 
  Country: None (occurrence: None)
  Receive Date: 20060216
  Receipt Date: 20060203
  Transmission Date: 20060701
  Serious: Yes (Hospitalization, Other)
  Sender: FDA-Public Use
  Company Number: 2006011110

PATIENT
  Age: 73 Year
  Sex: Female
  Weight: 38.3 kg

DRUGS (15)
  1. CABERGOLINE [Suspect]
     Indication: PARKINSON'S DISEASE
     Dosage: 4 MG (2 MG, 2 IN 1 D), ORAL
     Route: 048
     Dates: start: 20010712
  2. OMEPRAZOLE [Suspect]
     Indication: REFLUX OESOPHAGITIS
     Dosage: 10 MG (10 MG, 1 IN 1 D), ORAL
     Route: 048
     Dates: start: 20050926
  3. EC DOPARL (BENSERAZIDE HYDROCHLORIDE, LEVODOPA) [Concomitant]
  4. SYMMETREL [Concomitant]
  5. ASPIRIN [Concomitant]
  6. ZOLPIDEM TARTRATE [Concomitant]
  7. OMEPRAZOLE [Concomitant]
  8. LASIX [Concomitant]
  9. ALDACTONE [Concomitant]
  10. KERLONE [Concomitant]
  11. ALFACALCIDOL (ALFACALCIDOL) [Concomitant]
  12. ADALAT [Concomitant]
  13. GLAKAY (MENATETRENONE) [Concomitant]
  14. HERBAL PREPARATION (HERBAL PREPARATION) [Concomitant]
  15. CALSLOT (MANIDIPINE HYDROCHLORIDE) [Concomitant]

REACTIONS (10)
  - AORTIC VALVE INCOMPETENCE [None]
  - AORTIC VALVE STENOSIS [None]
  - BLOOD UREA INCREASED [None]
  - CARDIAC FAILURE CHRONIC [None]
  - CEREBRAL INFARCTION [None]
  - CONDITION AGGRAVATED [None]
  - FACE OEDEMA [None]
  - PLEURAL EFFUSION [None]
  - REFLUX OESOPHAGITIS [None]
  - URINE OUTPUT INCREASED [None]
